FAERS Safety Report 22657840 (Version 1)
Quarter: 2023Q2

REPORT INFORMATION
  Report Type: Other
  Country: GB (occurrence: GB)
  Receive Date: 20230630
  Receipt Date: 20230630
  Transmission Date: 20230722
  Serious: Yes (Other)
  Sender: FDA-Public Use
  Company Number: GB-MHRA-MED-202306181318352350-PRZVL

PATIENT

DRUGS (2)
  1. MOMETASONE FUROATE [Suspect]
     Active Substance: MOMETASONE FUROATE
     Indication: Dermatitis atopic
     Dosage: UNK
     Route: 065
     Dates: end: 20210215
  2. CYCLOSPORINE [Concomitant]
     Active Substance: CYCLOSPORINE
     Indication: Topical steroid withdrawal reaction
     Dosage: UNK
     Route: 065
     Dates: start: 20220520, end: 20230511

REACTIONS (14)
  - Medication error [Unknown]
  - Pruritus [Not Recovered/Not Resolved]
  - Body temperature abnormal [Unknown]
  - Panic attack [Unknown]
  - Insomnia [Unknown]
  - Weight decreased [Unknown]
  - Skin disorder [Unknown]
  - Alopecia [Unknown]
  - Skin weeping [Unknown]
  - Tremor [Unknown]
  - Pain [Unknown]
  - Skin exfoliation [Unknown]
  - Burning sensation [Unknown]
  - Dry skin [Unknown]

NARRATIVE: CASE EVENT DATE: 20220213
